FAERS Safety Report 20923333 (Version 1)
Quarter: 2022Q2

REPORT INFORMATION
  Report Type: Spontaneous
  Country: IN (occurrence: IN)
  Receive Date: 20220607
  Receipt Date: 20220607
  Transmission Date: 20220720
  Serious: Yes (Death)
  Sender: FDA-Public Use
  Company Number: IN-LUPIN PHARMACEUTICALS INC.-2022-08091

PATIENT
  Sex: Male

DRUGS (6)
  1. METHYLPREDNISOLONE [Suspect]
     Active Substance: METHYLPREDNISOLONE
     Indication: Chemical poisoning
     Dosage: UNK
     Route: 065
  2. METHYLPREDNISOLONE [Suspect]
     Active Substance: METHYLPREDNISOLONE
     Indication: Exposure to toxic agent
  3. ACETYLCYSTEINE [Suspect]
     Active Substance: ACETYLCYSTEINE
     Indication: Chemical poisoning
     Dosage: UNK
     Route: 065
  4. ACETYLCYSTEINE [Suspect]
     Active Substance: ACETYLCYSTEINE
     Indication: Exposure to toxic agent
  5. VITAMIN C [Suspect]
     Active Substance: ASCORBIC ACID
     Indication: Chemical poisoning
     Dosage: UNK
     Route: 065
  6. VITAMIN C [Suspect]
     Active Substance: ASCORBIC ACID
     Indication: Exposure to toxic agent

REACTIONS (2)
  - Drug ineffective for unapproved indication [Fatal]
  - Off label use [Unknown]
